FAERS Safety Report 21825884 (Version 1)
Quarter: 2023Q1

REPORT INFORMATION
  Report Type: Report from Study
  Country: US (occurrence: US)
  Receive Date: 20230105
  Receipt Date: 20230105
  Transmission Date: 20230418
  Serious: No
  Sender: FDA-Public Use
  Company Number: US-ABBVIE-22K-163-4370860-00

PATIENT
  Sex: Male

DRUGS (9)
  1. SKYRIZI [Suspect]
     Active Substance: RISANKIZUMAB-RZAA
     Indication: Psoriasis
     Dosage: STRENGTH: 150 MG
     Route: 058
     Dates: start: 2020
  2. SKYRIZI [Suspect]
     Active Substance: RISANKIZUMAB-RZAA
     Indication: Psoriasis
     Route: 058
  3. TADALAFIL [Concomitant]
     Active Substance: TADALAFIL
     Indication: Product used for unknown indication
     Dosage: 10 MG
  4. VITAMIN D [Concomitant]
     Active Substance: VITAMIN D NOS
     Indication: Product used for unknown indication
     Dosage: 10 MCG, 400
  5. VITAMIN C [Concomitant]
     Active Substance: ASCORBIC ACID
     Indication: Product used for unknown indication
     Dosage: 1000 MG
  6. ALFUZOSIN HYDROCHLORIDE [Concomitant]
     Active Substance: ALFUZOSIN HYDROCHLORIDE
     Indication: Product used for unknown indication
     Dosage: 10 MG, ER TAB ER 24H
  7. ZINC [Concomitant]
     Active Substance: ZINC
     Indication: Product used for unknown indication
     Dosage: 66 MG
  8. SILDENAFIL CITRATE [Concomitant]
     Active Substance: SILDENAFIL CITRATE
     Indication: Product used for unknown indication
     Dosage: 100 MG
  9. NEURIVAS [Concomitant]
     Indication: Product used for unknown indication
     Dosage: 100-100 MG

REACTIONS (8)
  - Rash [Unknown]
  - Immunodeficiency [Not Recovered/Not Resolved]
  - Pruritus [Unknown]
  - Nasopharyngitis [Not Recovered/Not Resolved]
  - Therapeutic product effect decreased [Unknown]
  - Pruritus [Not Recovered/Not Resolved]
  - COVID-19 [Not Recovered/Not Resolved]
  - Infection [Not Recovered/Not Resolved]

NARRATIVE: CASE EVENT DATE: 20210101
